FAERS Safety Report 6873075-8 (Version None)
Quarter: 2010Q3

REPORT INFORMATION
  Report Type: 
  Country: None (occurrence: None)
  Receive Date: 20100723
  Receipt Date: 20100716
  Transmission Date: 20110219
  Serious: Yes (Other)
  Sender: FDA-Public Use
  Company Number: US-AMGEN-QUU425099

PATIENT
  Sex: Female

DRUGS (3)
  1. ENBREL [Suspect]
     Route: 064
     Dates: start: 20080501
  2. NORVASC [Concomitant]
     Route: 064
  3. SYNTHROID [Concomitant]
     Route: 064

REACTIONS (3)
  - CAESAREAN SECTION [None]
  - FOETAL DISTRESS SYNDROME [None]
  - MATERNAL DRUGS AFFECTING FOETUS [None]
